FAERS Safety Report 8397608-8 (Version None)
Quarter: 2012Q2

REPORT INFORMATION
  Report Type: 
  Country: None (occurrence: None)
  Receive Date: 20120524
  Receipt Date: 20120517
  Transmission Date: 20120825
  Serious: Yes (Hospitalization)
  Sender: FDA-Public Use
  Company Number: TPA2012A02613

PATIENT
  Sex: Female

DRUGS (1)
  1. EDARBYCLOR [Suspect]
     Dosage: 1 IN 1 D, PER ORAL
     Route: 048
     Dates: end: 20120427

REACTIONS (1)
  - NO ADVERSE EVENT [None]
